FAERS Safety Report 5562963-0 (Version None)
Quarter: 2007Q4

REPORT INFORMATION
  Report Type: 
  Country: None (occurrence: None)
  Receive Date: 20071212
  Receipt Date: 20071212
  Transmission Date: 20080405
  Serious: Yes (Other)
  Sender: FDA-Public Use
  Company Number: None

PATIENT
  Sex: Female
  Weight: 80.7403 kg

DRUGS (2)
  1. AMBIEN CR [Suspect]
     Indication: SOMNOLENCE
  2. TRAMADOL HCL [Suspect]
     Indication: PAIN

REACTIONS (3)
  - AMNESIA [None]
  - DRUG DEPENDENCE [None]
  - SOMNAMBULISM [None]
